FAERS Safety Report 17197176 (Version 2)
Quarter: 2020Q1

REPORT INFORMATION
  Report Type: Spontaneous
  Country: CZ (occurrence: CZ)
  Receive Date: 20191224
  Receipt Date: 20200103
  Transmission Date: 20200409
  Serious: Yes (Death)
  Sender: FDA-Public Use
  Company Number: CZ-ASTRAZENECA-2019SF85418

PATIENT
  Age: 66 Year
  Sex: Male

DRUGS (7)
  1. METAMIZOLE [Concomitant]
     Active Substance: METAMIZOLE
     Dosage: UNKNOWN
     Route: 065
  2. QUETIAPINE. [Suspect]
     Active Substance: QUETIAPINE
     Indication: MENTAL DISORDER
     Dosage: UNKNOWN
     Route: 048
  3. AMANTADINE. [Concomitant]
     Active Substance: AMANTADINE HYDROCHLORIDE
     Dosage: UNKNOWN
     Route: 065
  4. METOPROLOL. [Concomitant]
     Active Substance: METOPROLOL
     Dosage: UNKNOWN
     Route: 065
  5. HALOPERIDOL. [Concomitant]
     Active Substance: HALOPERIDOL
     Dosage: UNKNOWN
     Route: 065
  6. TIAPRID [Concomitant]
     Active Substance: TIAPRIDE HYDROCHLORIDE
     Dosage: UNKNOWN
     Route: 065
  7. ESCITALOPRAM [Suspect]
     Active Substance: ESCITALOPRAM OXALATE
     Indication: MENTAL DISORDER
     Route: 048

REACTIONS (1)
  - Neuroleptic malignant syndrome [Fatal]
